FAERS Safety Report 14609475 (Version 1)
Quarter: 2018Q1

REPORT INFORMATION
  Report Type: Spontaneous
  Country: US (occurrence: US)
  Receive Date: 20180307
  Receipt Date: 20180307
  Transmission Date: 20180509
  Serious: No
  Sender: FDA-Public Use
  Company Number: US-ALLERGAN-1707419US

PATIENT
  Age: 18 Year
  Sex: Male
  Weight: 81.63 kg

DRUGS (2)
  1. VIIBRYD [Suspect]
     Active Substance: VILAZODONE HYDROCHLORIDE
     Indication: DEPRESSION
     Dosage: 20 MG, QD
     Route: 048
  2. VIIBRYD [Suspect]
     Active Substance: VILAZODONE HYDROCHLORIDE
     Dosage: 40 MG, QD
     Route: 048

REACTIONS (2)
  - Spontaneous penile erection [Not Recovered/Not Resolved]
  - Feeling jittery [Unknown]

NARRATIVE: CASE EVENT DATE: 20170224
